FAERS Safety Report 19760338 (Version 1)
Quarter: 2021Q3

REPORT INFORMATION
  Report Type: Report from Study
  Country: DE (occurrence: DE)
  Receive Date: 20210830
  Receipt Date: 20210830
  Transmission Date: 20211014
  Serious: Yes (Other)
  Sender: FDA-Public Use
  Company Number: DE-BAUSCH-BL-2021-028720

PATIENT
  Age: 8 Decade
  Sex: Female

DRUGS (4)
  1. DARATUMUMAB [Suspect]
     Active Substance: DARATUMUMAB
     Indication: PLASMA CELL MYELOMA
     Dosage: WEEK 1?14 DAY 7 OF WEEK 15
     Route: 058
  2. PREDNISOLONE. [Suspect]
     Active Substance: PREDNISOLONE
     Indication: PLASMA CELL MYELOMA
     Route: 065
  3. BORTEZOMIB. [Suspect]
     Active Substance: BORTEZOMIB
     Indication: PLASMA CELL MYELOMA
     Route: 065
  4. MELPHALAN. [Suspect]
     Active Substance: MELPHALAN
     Indication: PLASMA CELL MYELOMA
     Route: 065

REACTIONS (4)
  - Intentional product use issue [Unknown]
  - Off label use [Unknown]
  - Polyneuropathy [Unknown]
  - Fatigue [Unknown]
